FAERS Safety Report 5830084-5 (Version None)
Quarter: 2008Q3

REPORT INFORMATION
  Report Type: 
  Country: None (occurrence: None)
  Receive Date: 20080801
  Receipt Date: 20080724
  Transmission Date: 20090109
  Serious: Yes (Hospitalization, Other)
  Sender: FDA-Public Use
  Company Number: CZ-ABBOTT-07P-217-0424085-00

PATIENT
  Sex: Female
  Weight: 48 kg

DRUGS (16)
  1. HUMIRA [Suspect]
     Indication: CROHN'S DISEASE
     Dosage: FIRST LOADING DOSE
     Route: 058
     Dates: start: 20070509, end: 20070509
  2. HUMIRA [Suspect]
     Dosage: SECOND LOADING DOSE
     Route: 058
     Dates: start: 20070523, end: 20070523
  3. HUMIRA [Suspect]
     Route: 058
     Dates: start: 20060606, end: 20071010
  4. FERROUS SULFATE TAB [Concomitant]
     Indication: ANAEMIA
     Dates: start: 20060401, end: 20071029
  5. FERROUS SULFATE TAB [Concomitant]
     Dates: start: 20071030
  6. CETIRIZINE HYDROCHLORIDE [Concomitant]
     Indication: HOUSE DUST ALLERGY
     Dates: start: 20050101
  7. AMINOSALICYLIC ACID [Concomitant]
     Indication: CROHN'S DISEASE
  8. BALSALAZIDE DISODIUM [Concomitant]
     Indication: CROHN'S DISEASE
  9. MOSALAZINE [Concomitant]
     Indication: CROHN'S DISEASE
     Dates: start: 20040204
  10. SULFASALAZINE [Concomitant]
     Indication: CROHN'S DISEASE
  11. AZATHLOPINE [Concomitant]
     Indication: CROHN'S DISEASE
     Dates: start: 20050801
  12. CYCLOSPORINE [Concomitant]
     Indication: CROHN'S DISEASE
  13. BUDESONIDE [Concomitant]
     Indication: CROHN'S DISEASE
     Dates: start: 20060110
  14. BETAMETHASONE [Concomitant]
     Indication: CROHN'S DISEASE
  15. DEXAMETHASONE [Concomitant]
     Indication: CROHN'S DISEASE
  16. CORTISONE [Concomitant]
     Indication: CROHN'S DISEASE

REACTIONS (2)
  - LUNG INFILTRATION [None]
  - TUBERCULIN TEST POSITIVE [None]
